FAERS Safety Report 4274629-8 (Version None)
Quarter: 2004Q1

REPORT INFORMATION
  Report Type: 
  Country: None (occurrence: None)
  Receive Date: 20040115
  Receipt Date: 20040106
  Transmission Date: 20041129
  Serious: Yes (Hospitalization, Congenital Anomaly)
  Sender: FDA-Public Use
  Company Number: 2003CG00947

PATIENT
  Age: 1 Day
  Sex: Male
  Weight: 1.66 kg

DRUGS (1)
  1. ATACAND [Suspect]
     Indication: HYPERTENSION
     Dates: start: 20020101, end: 20030425

REACTIONS (15)
  - BETA HAEMOLYTIC STREPTOCOCCAL INFECTION [None]
  - BLOOD CREATINE INCREASED [None]
  - BLOOD CREATININE INCREASED [None]
  - CAESAREAN SECTION [None]
  - CONGENITAL MULTIPLEX ARTHROGRYPOSIS [None]
  - HAEMORRHAGE [None]
  - HYPERGLYCAEMIA [None]
  - MATERNAL DRUGS AFFECTING FOETUS [None]
  - NEONATAL RESPIRATORY DISTRESS SYNDROME [None]
  - PREMATURE BABY [None]
  - RENAL ARTERY THROMBOSIS [None]
  - RESPIRATORY DISORDER [None]
  - SEPTIC SHOCK [None]
  - SKULL MALFORMATION [None]
  - TACHYCARDIA [None]
